FAERS Safety Report 24805946 (Version 2)
Quarter: 2025Q1

REPORT INFORMATION
  Report Type: Report from Study
  Country: CN (occurrence: CN)
  Receive Date: 20250103
  Receipt Date: 20250319
  Transmission Date: 20250409
  Serious: Yes (Other)
  Sender: GILEAD
  Company Number: CN-GILEAD-2024-0697354

PATIENT
  Age: 49 Year
  Sex: Female

DRUGS (7)
  1. SACITUZUMAB GOVITECAN-HZIY [Suspect]
     Active Substance: SACITUZUMAB GOVITECAN-HZIY
     Indication: Breast cancer
     Dosage: 540 MG, Q3WK (DAY 8)
     Route: 041
     Dates: start: 20241204
  2. SACITUZUMAB GOVITECAN-HZIY [Suspect]
     Active Substance: SACITUZUMAB GOVITECAN-HZIY
     Route: 042
     Dates: start: 20241224
  3. SACITUZUMAB GOVITECAN-HZIY [Suspect]
     Active Substance: SACITUZUMAB GOVITECAN-HZIY
     Dosage: 540 MG, Q3WK (D1, D8
     Route: 041
     Dates: start: 20250302
  4. BEVACIZUMAB [Concomitant]
     Active Substance: BEVACIZUMAB
     Dosage: 300 MG, Q3WK (DAY 1)
     Route: 041
     Dates: start: 20241204
  5. BEVACIZUMAB [Concomitant]
     Active Substance: BEVACIZUMAB
     Dosage: 300 MG, Q3WK
     Route: 041
     Dates: start: 20241224
  6. BEVACIZUMAB [Concomitant]
     Active Substance: BEVACIZUMAB
     Dosage: 300 MG, Q3WK (D1, D8)
     Route: 041
     Dates: start: 20250302
  7. DENOSUMAB [Concomitant]
     Active Substance: DENOSUMAB
     Indication: Metastases to bone

REACTIONS (14)
  - Myelosuppression [Unknown]
  - Metastases to lymph nodes [Unknown]
  - Metastases to lung [Unknown]
  - Metastases to liver [Unknown]
  - Malignant splenic neoplasm [Unknown]
  - Brain neoplasm malignant [Unknown]
  - Metastases to bone [Unknown]
  - Type IIb hyperlipidaemia [Unknown]
  - Essential hypertension [Unknown]
  - Cough [Unknown]
  - Dyspepsia [Unknown]
  - Nausea [Recovered/Resolved]
  - Retching [Recovered/Resolved]
  - White blood cell count decreased [Recovered/Resolved]
